FAERS Safety Report 8851012 (Version 9)
Quarter: 2014Q2

REPORT INFORMATION
  Report Type: Spontaneous
  Country: US (occurrence: US)
  Receive Date: 20121019
  Receipt Date: 20140508
  Transmission Date: 20141212
  Serious: Yes (Life-Threatening, Hospitalization)
  Sender: FDA-Public Use
  Company Number: US-JNJFOC-20111206223

PATIENT
  Sex: Male
  Weight: 92.53 kg

DRUGS (5)
  1. EXTRA STRENGTH TYLENOL [Suspect]
     Indication: HEADACHE
     Dosage: FOR 3 WEEKS PRIOR TO HOSPITALIZATION
     Route: 048
     Dates: start: 20091201, end: 20091215
  2. EXTRA STRENGTH TYLENOL [Suspect]
     Indication: ABDOMINAL PAIN
     Dosage: FOR 3 WEEKS PRIOR TO HOSPITALIZATION
     Route: 048
     Dates: start: 20091201, end: 20091215
  3. ALCOHOL [Suspect]
     Indication: PRODUCT USED FOR UNKNOWN INDICATION
     Route: 065
  4. BENZODIAZEPINE NOS [Concomitant]
     Indication: PRODUCT USED FOR UNKNOWN INDICATION
     Route: 065
  5. AMPHETAMINE [Concomitant]
     Indication: PRODUCT USED FOR UNKNOWN INDICATION
     Route: 065

REACTIONS (5)
  - Acute hepatic failure [Recovered/Resolved]
  - Renal failure acute [Recovered/Resolved]
  - Encephalopathy [Recovering/Resolving]
  - Coagulopathy [Recovering/Resolving]
  - Overdose [Recovering/Resolving]
